FAERS Safety Report 17455355 (Version 1)
Quarter: 2020Q1

REPORT INFORMATION
  Report Type: Spontaneous
  Country: US (occurrence: US)
  Receive Date: 20200212
  Receipt Date: 20200212
  Transmission Date: 20200409
  Serious: Yes (Hospitalization)
  Sender: FDA-Public Use
  Company Number: None

PATIENT
  Age: 31 Year
  Sex: Female

DRUGS (5)
  1. CLARITIN RDT [Concomitant]
  2. HEATHER TAB [Concomitant]
  3. PRENATAL TAB [Concomitant]
  4. CIMZIA [Suspect]
     Active Substance: CERTOLIZUMAB PEGOL
     Indication: CROHN^S DISEASE
     Route: 058
     Dates: start: 20180413
  5. PENTASA CAP [Concomitant]

REACTIONS (1)
  - Pharyngitis streptococcal [None]
